FAERS Safety Report 23324215 (Version 1)
Quarter: 2023Q4

REPORT INFORMATION
  Report Type: Spontaneous
  Country: NO (occurrence: NO)
  Receive Date: 20231221
  Receipt Date: 20231221
  Transmission Date: 20240110
  Serious: Yes (Hospitalization)
  Sender: FDA-Public Use
  Company Number: None

PATIENT
  Age: 32 Year
  Sex: Female

DRUGS (2)
  1. WEGOVY [Suspect]
     Active Substance: SEMAGLUTIDE
     Indication: Obesity
     Dosage: 0.5 MG, QW
     Route: 058
     Dates: start: 20231016
  2. WEGOVY [Suspect]
     Active Substance: SEMAGLUTIDE
     Dosage: UNK(GRADUAL ESCALATION OF THE DOSE)
     Route: 058

REACTIONS (2)
  - Insomnia [Not Recovered/Not Resolved]
  - Monoparesis [Recovering/Resolving]

NARRATIVE: CASE EVENT DATE: 20231016
